FAERS Safety Report 9127235 (Version 3)
Quarter: 2013Q2

REPORT INFORMATION
  Report Type: Spontaneous
  Country: IN (occurrence: IN)
  Receive Date: 20130228
  Receipt Date: 20130412
  Transmission Date: 20140414
  Serious: Yes (Other)
  Sender: FDA-Public Use
  Company Number: IN-GENZYME-THYM-1003667

PATIENT
  Age: 21 Year
  Sex: Male
  Weight: 67 kg

DRUGS (6)
  1. THYMOGLOBULINE [Suspect]
     Indication: RENAL TRANSPLANT
     Dosage: 200 MG, ONCE (3 MG/KG)
     Route: 042
     Dates: start: 20130122, end: 20130122
  2. RITUXIMAB [Concomitant]
     Indication: IMMUNOSUPPRESSANT DRUG THERAPY
     Dosage: 100 MG, Q2W
     Route: 065
     Dates: start: 201211, end: 20130122
  3. SOLU MEDROL [Concomitant]
     Indication: RENAL TRANSPLANT
     Dosage: UNK
     Route: 065
     Dates: start: 20130122, end: 20130123
  4. TACSANT [Concomitant]
     Indication: IMMUNOSUPPRESSANT DRUG THERAPY
     Dosage: 2 MG, BID
     Route: 065
     Dates: start: 20130118
  5. CELLCEPT [Concomitant]
     Indication: IMMUNOSUPPRESSANT DRUG THERAPY
     Dosage: 500 MG, BID
     Route: 065
     Dates: start: 20130118
  6. WYSOLONE [Concomitant]
     Indication: IMMUNOSUPPRESSANT DRUG THERAPY
     Dosage: 20 MG, QD
     Route: 065
     Dates: start: 20130124

REACTIONS (2)
  - Drug ineffective [Unknown]
  - Transplant rejection [Recovered/Resolved]
